FAERS Safety Report 11721321 (Version 1)
Quarter: 2015Q4

REPORT INFORMATION
  Report Type: Spontaneous
  Country: ES (occurrence: ES)
  Receive Date: 20151111
  Receipt Date: 20151111
  Transmission Date: 20160304
  Serious: Yes (Hospitalization, Other)
  Sender: FDA-Public Use
  Company Number: ES-AMGEN-ESPSP2015116640

PATIENT
  Age: 62 Year
  Sex: Male

DRUGS (35)
  1. OXALIPLATIN. [Suspect]
     Active Substance: OXALIPLATIN
     Dosage: UNK (DOSE REDUCTION IN FEW CYCLES)
     Route: 042
  2. FLUOROURACIL. [Suspect]
     Active Substance: FLUOROURACIL
     Dosage: UNK, CYC
     Route: 042
     Dates: start: 201203, end: 201207
  3. LEUCOVORIN                         /00566702/ [Suspect]
     Active Substance: LEUCOVORIN
     Indication: COLORECTAL CANCER
     Dosage: 200 MG/M2, CYC (ADMINISTERED IN 2 HOURS) (RECEIVED 7 CYCLES)
     Route: 042
     Dates: start: 200508, end: 200601
  4. FOLINIC ACID [Suspect]
     Active Substance: LEUCOVORIN
     Dosage: UNK, CYC
     Route: 065
     Dates: start: 201311, end: 201312
  5. FLUOROURACIL. [Suspect]
     Active Substance: FLUOROURACIL
     Dosage: UNK, CYC (REQUIRED DOSE REDUCTION IN SUBSEQUENT CYCLES)
     Route: 042
     Dates: start: 200711, end: 200801
  6. LEUCOVORIN                         /00566702/ [Suspect]
     Active Substance: LEUCOVORIN
     Dosage: 200 MG/M2, CYC
     Route: 042
     Dates: start: 200701, end: 200707
  7. LEUCOVORIN                         /00566702/ [Suspect]
     Active Substance: LEUCOVORIN
     Dosage: UNK, CYC
     Route: 042
     Dates: start: 200909, end: 201005
  8. PANITUMUMAB [Suspect]
     Active Substance: PANITUMUMAB
     Indication: COLORECTAL CANCER
     Dosage: UNK, CYC
     Route: 065
     Dates: start: 201302, end: 201309
  9. OXALIPLATIN. [Suspect]
     Active Substance: OXALIPLATIN
     Dosage: UNK, CYC
     Route: 042
     Dates: start: 200909, end: 201005
  10. FLUOROURACIL. [Suspect]
     Active Substance: FLUOROURACIL
     Dosage: UNK, CYC
     Route: 042
     Dates: start: 200809, end: 200903
  11. IRINOTECAN [Suspect]
     Active Substance: IRINOTECAN
     Indication: COLORECTAL CANCER
     Dosage: 180 MG/M2, CYC (ADMINISTERED IN 2 HOURS)
     Route: 042
     Dates: start: 200701, end: 200707
  12. FLUOROURACIL. [Suspect]
     Active Substance: FLUOROURACIL
     Indication: COLORECTAL CANCER
     Dosage: 400 MG/M2, CYC (IV BOLUS ON DAY 1)
     Route: 042
     Dates: start: 200508, end: 200601
  13. FLUOROURACIL. [Suspect]
     Active Substance: FLUOROURACIL
     Dosage: UNK (REQUIRING A DELAYED DOSE)
     Route: 042
     Dates: start: 200606, end: 200608
  14. FLUOROURACIL. [Suspect]
     Active Substance: FLUOROURACIL
     Dosage: UNK, CYC
     Route: 042
     Dates: start: 200909, end: 201005
  15. FLUOROURACIL. [Suspect]
     Active Substance: FLUOROURACIL
     Dosage: UNK, CYC (CYCLES OF FOLFOX)
     Route: 042
     Dates: start: 201111, end: 201112
  16. FLUOROURACIL. [Suspect]
     Active Substance: FLUOROURACIL
     Dosage: UNK, CYC (DE GRAMONT)
     Route: 065
     Dates: start: 201111, end: 201112
  17. BEVACIZUMAB [Suspect]
     Active Substance: BEVACIZUMAB
     Indication: COLORECTAL CANCER
     Dosage: UNK, CYC
     Route: 065
     Dates: start: 200809, end: 200903
  18. FLUOROURACIL. [Suspect]
     Active Substance: FLUOROURACIL
     Dosage: UNK (DOSE REDUCTION IN FEW CYCLES)
     Route: 042
  19. FLUOROURACIL. [Suspect]
     Active Substance: FLUOROURACIL
     Dosage: UNK, CYC
     Route: 065
     Dates: start: 201311, end: 201312
  20. LEUCOVORIN                         /00566702/ [Suspect]
     Active Substance: LEUCOVORIN
     Dosage: UNK (REQUIRING A DELAYED DOSE)
     Route: 042
     Dates: start: 200606, end: 200608
  21. LEUCOVORIN                         /00566702/ [Suspect]
     Active Substance: LEUCOVORIN
     Dosage: UNK, CYC
     Route: 042
     Dates: start: 201203, end: 201207
  22. IRINOTECAN [Suspect]
     Active Substance: IRINOTECAN
     Dosage: UNK, CYC (REQUIRED DOSE REDUCTION IN SUBSEQUENT CYCLES)
     Route: 042
     Dates: start: 200711, end: 200801
  23. FLUOROURACIL. [Suspect]
     Active Substance: FLUOROURACIL
     Dosage: 2400 MG/M2, CYC (CONTINEOUS INFUSION ADMINISTERED FOR 46 HOURS)
     Route: 042
     Dates: start: 200508, end: 200601
  24. OXALIPLATIN. [Suspect]
     Active Substance: OXALIPLATIN
     Dosage: UNK (REQUIRING A DELAYED DOSE)
     Route: 042
     Dates: start: 200606, end: 200608
  25. FLUOROURACIL. [Suspect]
     Active Substance: FLUOROURACIL
     Dosage: UNK, CYC
     Route: 042
     Dates: start: 200701, end: 200707
  26. FLUOROURACIL. [Suspect]
     Active Substance: FLUOROURACIL
     Dosage: UNK, CYC
     Route: 065
     Dates: start: 200802
  27. LEUCOVORIN                         /00566702/ [Suspect]
     Active Substance: LEUCOVORIN
     Dosage: UNK, CYC
     Route: 042
     Dates: start: 200809, end: 200903
  28. FOLINIC ACID [Suspect]
     Active Substance: LEUCOVORIN
     Indication: COLORECTAL CANCER
     Dosage: UNK, CYC
     Route: 065
     Dates: start: 201111, end: 201112
  29. BEVACIZUMAB [Suspect]
     Active Substance: BEVACIZUMAB
     Dosage: UNK, CYC
     Route: 065
     Dates: start: 201203, end: 201207
  30. IRINOTECAN [Suspect]
     Active Substance: IRINOTECAN
     Dosage: UNK, CYC
     Route: 042
     Dates: start: 200809, end: 200903
  31. IRINOTECAN [Suspect]
     Active Substance: IRINOTECAN
     Dosage: UNK, CYC
     Route: 042
     Dates: start: 201203, end: 201207
  32. OXALIPLATIN. [Suspect]
     Active Substance: OXALIPLATIN
     Indication: COLORECTAL CANCER
     Dosage: 85 MG/M2, CYC (ADMINISTERED IN 2 HOURS) (RECEIVED 7 CYCLES)
     Route: 042
     Dates: start: 200508, end: 200601
  33. OXALIPLATIN. [Suspect]
     Active Substance: OXALIPLATIN
     Dosage: UNK, CYC
     Route: 042
     Dates: start: 201111, end: 201112
  34. LEUCOVORIN                         /00566702/ [Suspect]
     Active Substance: LEUCOVORIN
     Dosage: UNK (DOSE REDUCTION IN FEW CYCLES)
     Route: 042
  35. LEUCOVORIN                         /00566702/ [Suspect]
     Active Substance: LEUCOVORIN
     Dosage: UNK, CYC (REQUIRED DOSE REDUCTION IN SUBSEQUENT CYCLES)
     Route: 042
     Dates: start: 200711, end: 200801

REACTIONS (13)
  - Mucosal inflammation [Unknown]
  - Neutropenia [Unknown]
  - Leukopenia [Unknown]
  - Onychomadesis [Unknown]
  - Paraesthesia [Unknown]
  - Diarrhoea [Unknown]
  - Dyspnoea [Unknown]
  - Performance status decreased [Unknown]
  - Radiculopathy [Unknown]
  - Asthenia [Unknown]
  - Palmar-plantar erythrodysaesthesia syndrome [Unknown]
  - Acne [Unknown]
  - Fatigue [Unknown]
